FAERS Safety Report 15864930 (Version 2)
Quarter: 2019Q1

REPORT INFORMATION
  Report Type: Report from Study
  Country: JP (occurrence: JP)
  Receive Date: 20190124
  Receipt Date: 20190211
  Transmission Date: 20190417
  Serious: Yes (Hospitalization)
  Sender: FDA-Public Use
  Company Number: JP-GE HEALTHCARE LIFE SCIENCES-2019CSU000356

PATIENT

DRUGS (8)
  1. FLUOROMETHOLONE. [Concomitant]
     Active Substance: FLUOROMETHOLONE
     Indication: CONJUNCTIVITIS ALLERGIC
     Dosage: 1 DROP, QID, LEFT EYE
     Route: 047
     Dates: start: 20171225
  2. ATORVASTATIN [Concomitant]
     Active Substance: ATORVASTATIN
     Indication: HYPERLIPIDAEMIA
     Dosage: 5 MG, QD
     Route: 048
     Dates: start: 2007
  3. SODIUM HYALURONATE [Concomitant]
     Active Substance: HYALURONATE SODIUM
     Indication: PROPHYLAXIS
     Dosage: 2 DROPS, QID, BOTH EYES
     Route: 047
     Dates: start: 201503
  4. SODIUM HYALURONATE [Concomitant]
     Active Substance: HYALURONATE SODIUM
     Dosage: UNK
  5. VIZAMYL [Suspect]
     Active Substance: FLUTEMETAMOL F-18
     Indication: POSITRON EMISSION TOMOGRAM
     Dosage: UNK
     Route: 065
     Dates: start: 20171109, end: 20180531
  6. VIZAMYL [Suspect]
     Active Substance: FLUTEMETAMOL F-18
     Indication: DEMENTIA ALZHEIMER^S TYPE
  7. DONEPEZIL. [Concomitant]
     Active Substance: DONEPEZIL
     Indication: DEMENTIA ALZHEIMER^S TYPE
     Dosage: 5 MG, QD
     Route: 048
     Dates: start: 20170725
  8. ADUCANUMAB [Suspect]
     Active Substance: ADUCANUMAB
     Indication: DEMENTIA ALZHEIMER^S TYPE
     Dosage: UNK
     Dates: start: 20171127, end: 20181226

REACTIONS (1)
  - Constipation [Recovered/Resolved]

NARRATIVE: CASE EVENT DATE: 20190116
